FAERS Safety Report 13935418 (Version 1)
Quarter: 2017Q3

REPORT INFORMATION
  Report Type: Spontaneous
  Country: US (occurrence: US)
  Receive Date: 20170901
  Receipt Date: 20170901
  Transmission Date: 20171127
  Serious: Yes (Disabling, Other)
  Sender: FDA-Public Use
  Company Number: None

PATIENT
  Age: 44 Year
  Sex: Female

DRUGS (1)
  1. ERYTHROMYCIN. [Suspect]
     Active Substance: ERYTHROMYCIN
     Indication: IMPETIGO
     Dosage: ?          QUANTITY:40 CAPSULE(S);?
     Route: 048
     Dates: start: 20170517, end: 20170526

REACTIONS (5)
  - Hypoaesthesia [None]
  - Micturition frequency decreased [None]
  - Balance disorder [None]
  - Seizure like phenomena [None]
  - Acne [None]

NARRATIVE: CASE EVENT DATE: 20170518
